FAERS Safety Report 7947037-3 (Version None)
Quarter: 2011Q4

REPORT INFORMATION
  Report Type: 
  Country: None (occurrence: None)
  Receive Date: 20111129
  Receipt Date: 20111003
  Transmission Date: 20120403
  Serious: No
  Sender: FDA-Public Use
  Company Number: US-ASTRAZENECA-2011SE57909

PATIENT
  Sex: Female

DRUGS (2)
  1. VIMOVO [Suspect]
     Dosage: 1 DF TWO TIMES A DAY
     Route: 048
     Dates: start: 20110601
  2. VIMOVO [Suspect]
     Dosage: 1 DF EVERY OTHER DAY
     Route: 048

REACTIONS (2)
  - ARTHRITIS [None]
  - INAPPROPRIATE SCHEDULE OF DRUG ADMINISTRATION [None]
